FAERS Safety Report 4632786-5 (Version None)
Quarter: 2005Q2

REPORT INFORMATION
  Report Type: 
  Country: None (occurrence: None)
  Receive Date: 20050408
  Receipt Date: 20050408
  Transmission Date: 20051028
  Serious: Yes (Other)
  Sender: FDA-Public Use
  Company Number: None

PATIENT
  Age: 26 Year
  Sex: Female
  Weight: 52.1637 kg

DRUGS (1)
  1. LEVLEN 28 [Suspect]
     Indication: CONTRACEPTION
     Dosage: DAILY
     Dates: start: 19990401, end: 20010201

REACTIONS (2)
  - CERVIX HAEMORRHAGE UTERINE [None]
  - PHARMACEUTICAL PRODUCT COMPLAINT [None]
